FAERS Safety Report 5063000-7 (Version None)
Quarter: 2006Q3

REPORT INFORMATION
  Report Type: 
  Country: None (occurrence: None)
  Receive Date: 20060724
  Receipt Date: 20060724
  Transmission Date: 20061208
  Serious: Yes (Other)
  Sender: FDA-Public Use
  Company Number: None

PATIENT
  Age: 68 Year
  Sex: Female

DRUGS (1)
  1. LAMOTRIGINE [Suspect]
     Indication: HYPOMANIA
     Dates: start: 20060430, end: 20060506

REACTIONS (5)
  - EMOTIONAL DISTRESS [None]
  - ORAL SOFT TISSUE DISORDER [None]
  - RASH [None]
  - RASH MACULAR [None]
  - RASH PUSTULAR [None]
